FAERS Safety Report 7217877-7 (Version None)
Quarter: 2011Q1

REPORT INFORMATION
  Report Type: 
  Country: None (occurrence: None)
  Receive Date: 20110110
  Receipt Date: 20101230
  Transmission Date: 20110831
  Serious: Yes (Hospitalization)
  Sender: FDA-Public Use
  Company Number: FR-BRISTOL-MYERS SQUIBB COMPANY-15474752

PATIENT
  Age: 21 Year
  Sex: Male

DRUGS (4)
  1. METYRAPONE [Suspect]
     Dosage: 1DF:6DF (16NOV2010 TO 17NOV2010)6 TABS (1D) 9DF:18NOV2010 TO ONG (9TABS)
     Route: 048
     Dates: start: 20101116
  2. LYSODREN [Suspect]
     Dosage: 2DF:2 TABLETS
     Route: 048
     Dates: start: 20101006
  3. ALDACTONE [Suspect]
     Route: 048
     Dates: start: 20101116
  4. LEVOTHYROX [Suspect]
     Route: 048
     Dates: start: 20101116

REACTIONS (1)
  - HEPATITIS ACUTE [None]
